FAERS Safety Report 23674039 (Version 2)
Quarter: 2024Q2

REPORT INFORMATION
  Report Type: Spontaneous
  Country: US (occurrence: US)
  Receive Date: 20240326
  Receipt Date: 20240411
  Transmission Date: 20240716
  Serious: No
  Sender: FDA-Public Use
  Company Number: US-INFO-20240066

PATIENT
  Age: 62 Year
  Sex: Female

DRUGS (1)
  1. LEVOFLOXACIN [Suspect]
     Active Substance: LEVOFLOXACIN
     Indication: Prophylaxis
     Dosage: EXPIRY DATE: SEP-2026 ()
     Route: 042

REACTIONS (3)
  - Urticaria [Unknown]
  - Pruritus [Unknown]
  - Erythema [Unknown]
